FAERS Safety Report 12055811 (Version 2)
Quarter: 2016Q2

REPORT INFORMATION
  Report Type: Spontaneous
  Country: JP (occurrence: JP)
  Receive Date: 20160209
  Receipt Date: 20160601
  Transmission Date: 20160815
  Serious: Yes (Other)
  Sender: FDA-Public Use
  Company Number: JP-IGI LABORATORIES, INC.-1047566

PATIENT
  Age: 68 Year
  Sex: Female
  Weight: 29 kg

DRUGS (5)
  1. SEROTONE [Concomitant]
     Active Substance: AZASETRON HYDROCHLORIDE
     Dates: start: 20160104
  2. PACLITAXEL. [Concomitant]
     Active Substance: PACLITAXEL
  3. POLARAMINE [Concomitant]
     Active Substance: DEXCHLORPHENIRAMINE MALEATE
     Dates: start: 20160104
  4. ZANTAC [Suspect]
     Active Substance: RANITIDINE HYDROCHLORIDE
     Indication: PREMEDICATION
     Route: 041
     Dates: start: 20150831
  5. DEXART [Concomitant]
     Active Substance: DEXAMETHASONE SODIUM PHOSPHATE
     Dates: start: 20160104

REACTIONS (7)
  - Blood pressure decreased [Recovered/Resolved]
  - Defaecation urgency [Recovered/Resolved]
  - Loss of consciousness [Recovered/Resolved]
  - Dysphoria [Recovered/Resolved]
  - Feeling abnormal [Unknown]
  - Off label use [Unknown]
  - Pallor [Recovered/Resolved]

NARRATIVE: CASE EVENT DATE: 20160104
